FAERS Safety Report 9287383 (Version 2)
Quarter: 2013Q2

REPORT INFORMATION
  Report Type: Report from Study
  Country: US (occurrence: US)
  Receive Date: 20130514
  Receipt Date: 20130524
  Transmission Date: 20140414
  Serious: Yes (Death)
  Sender: FDA-Public Use
  Company Number: US-ROCHE-1224017

PATIENT
  Age: 48 Year
  Sex: Female
  Weight: 67 kg

DRUGS (2)
  1. ALTEPLASE [Suspect]
     Indication: ISCHAEMIC STROKE
     Route: 042
     Dates: start: 20130418, end: 20130418
  2. TENECTEPLASE [Suspect]
     Indication: ISCHAEMIC STROKE
     Route: 065

REACTIONS (1)
  - Death [Fatal]
